FAERS Safety Report 20158717 (Version 2)
Quarter: 2021Q4

REPORT INFORMATION
  Report Type: Spontaneous
  Country: AU (occurrence: None)
  Receive Date: 20211208
  Receipt Date: 20211208
  Transmission Date: 20220303
  Serious: Yes (Other)
  Sender: FDA-Public Use
  Company Number: 2021A856825

PATIENT
  Age: 64 Year
  Sex: Female

DRUGS (15)
  1. ROSUVASTATIN [Suspect]
     Active Substance: ROSUVASTATIN
     Route: 065
  2. METFORMIN [Concomitant]
     Active Substance: METFORMIN HYDROCHLORIDE
  3. LINAGLIPTIN [Concomitant]
     Active Substance: LINAGLIPTIN
  4. INSULIN ASPART [Concomitant]
     Active Substance: INSULIN ASPART
  5. LENALIDOMIDE [Concomitant]
     Active Substance: LENALIDOMIDE
  6. BACTRIM [Concomitant]
     Active Substance: SULFAMETHOXAZOLE\TRIMETHOPRIM
  7. VALCICLOVIR [Concomitant]
  8. LERCANDIPINE [Concomitant]
  9. PANTOPRAZOLE [Concomitant]
     Active Substance: PANTOPRAZOLE
  10. FUROSEMIDE [Concomitant]
     Active Substance: FUROSEMIDE
  11. ENTECAVIR [Concomitant]
     Active Substance: ENTECAVIR
  12. HYDROMORPHONE HYDROCHLORIDE [Concomitant]
     Active Substance: HYDROMORPHONE HYDROCHLORIDE
  13. CALCIUM [Concomitant]
     Active Substance: CALCIUM
  14. CALCITRIOL [Concomitant]
     Active Substance: CALCITRIOL
  15. SERETIDE [Concomitant]
     Active Substance: FLUTICASONE PROPIONATE\SALMETEROL XINAFOATE

REACTIONS (2)
  - Renal impairment [Unknown]
  - Type 2 diabetes mellitus [Unknown]
